FAERS Safety Report 23040803 (Version 1)
Quarter: 2023Q4

REPORT INFORMATION
  Report Type: Spontaneous
  Country: GB (occurrence: GB)
  Receive Date: 20231006
  Receipt Date: 20231006
  Transmission Date: 20240109
  Serious: Yes (Other)
  Sender: FDA-Public Use
  Company Number: GB-ANIPHARMA-2023-UK-000289

PATIENT
  Sex: Female

DRUGS (3)
  1. ANASTROZOLE [Suspect]
     Active Substance: ANASTROZOLE
     Indication: Breast cancer metastatic
     Route: 048
  2. FUROSEMIDE [Concomitant]
     Active Substance: FUROSEMIDE
     Dosage: 20 MG DAILY
     Route: 065
  3. LYNPARZA [Concomitant]
     Active Substance: OLAPARIB
     Route: 048

REACTIONS (6)
  - Metastatic neoplasm [Unknown]
  - Metastases to bone [Unknown]
  - Lymphadenopathy [Unknown]
  - Peripheral vascular disorder [Unknown]
  - Lethargy [Unknown]
  - Drug ineffective [Unknown]
